FAERS Safety Report 6182208-0 (Version None)
Quarter: 2009Q2

REPORT INFORMATION
  Report Type: 
  Country: None (occurrence: None)
  Receive Date: 20090507
  Receipt Date: 20090430
  Transmission Date: 20091009
  Serious: Yes (Hospitalization)
  Sender: FDA-Public Use
  Company Number: CA-ASTRAZENECA-2009UW10907

PATIENT
  Age: 71 Year
  Sex: Male

DRUGS (12)
  1. CRESTOR [Suspect]
     Route: 048
  2. LOSEC [Concomitant]
     Indication: DYSPEPSIA
     Route: 048
  3. OTHER STATINS [Concomitant]
  4. HYDROCHLOROTHIAZIDE [Concomitant]
  5. METOPROLOL [Concomitant]
     Route: 048
  6. CALCIUM [Concomitant]
  7. FISH OIL [Concomitant]
  8. EZETROL [Concomitant]
  9. ASPIRIN [Concomitant]
  10. VITAMIN E [Concomitant]
  11. VITAMIN D [Concomitant]
  12. MULTIVITAMIN FOR SENIORS [Concomitant]

REACTIONS (6)
  - ABDOMINAL PAIN [None]
  - CARDIAC PACEMAKER INSERTION [None]
  - HEART RATE DECREASED [None]
  - MUSCULAR WEAKNESS [None]
  - MYALGIA [None]
  - VASCULAR GRAFT [None]
